FAERS Safety Report 25481102 (Version 1)
Quarter: 2025Q2

REPORT INFORMATION
  Report Type: Spontaneous
  Country: US (occurrence: US)
  Receive Date: 20250626
  Receipt Date: 20250626
  Transmission Date: 20250717
  Serious: Yes (Other)
  Sender: VELOXIS PHARMACEUTICALS
  Company Number: US-VELOXIS PHARMACEUTICALS, INC.-2025-VEL-00321

PATIENT

DRUGS (1)
  1. ENVARSUS XR [Suspect]
     Active Substance: TACROLIMUS
     Indication: Lung transplant

REACTIONS (7)
  - Lung transplant rejection [Unknown]
  - Renal impairment [Unknown]
  - Complications of transplanted lung [Unknown]
  - Viral infection [Unknown]
  - Fungal infection [Unknown]
  - Bacterial infection [Unknown]
  - Off label use [Unknown]
